FAERS Safety Report 24549513 (Version 1)
Quarter: 2024Q4

REPORT INFORMATION
  Report Type: Report from Study
  Country: US (occurrence: US)
  Receive Date: 20241025
  Receipt Date: 20241025
  Transmission Date: 20250114
  Serious: Yes (Hospitalization)
  Sender: MYLAN
  Company Number: US-MYLANLABS-2024M1095595

PATIENT
  Age: 65 Year
  Sex: Male

DRUGS (1)
  1. PREDNISONE [Suspect]
     Active Substance: PREDNISONE
     Indication: Immunosuppressant drug therapy
     Dosage: UNK (INJECTION)
     Route: 065

REACTIONS (2)
  - Musculoskeletal disorder [Recovering/Resolving]
  - Nocardiosis [Recovering/Resolving]
